FAERS Safety Report 9540271 (Version 1)
Quarter: 2013Q3

REPORT INFORMATION
  Report Type: Spontaneous
  Country: IT (occurrence: None)
  Receive Date: 20130917
  Receipt Date: 20130917
  Transmission Date: 20140515
  Serious: Yes (Hospitalization)
  Sender: FDA-Public Use
  Company Number: DSM-2013-00817

PATIENT
  Age: 78 Year
  Sex: Male

DRUGS (4)
  1. OLMESARTAN MEDOXOMIL/HYDROCHLOROTHIAZIDE [Suspect]
     Indication: ESSENTIAL HYPERTENSION
     Route: 048
  2. CONGESCOR [Suspect]
     Indication: CARDIAC FAILURE CHRONIC
     Route: 048
  3. LANOXIN [Suspect]
     Indication: CARDIAC FAILURE CHRONIC
     Route: 048
  4. LASIX (FUROSEMIDE) [Concomitant]

REACTIONS (3)
  - Bradycardia [None]
  - Syncope [None]
  - Drug interaction [None]
